FAERS Safety Report 4416224-3 (Version None)
Quarter: 2004Q3

REPORT INFORMATION
  Report Type: 
  Country: None (occurrence: None)
  Receive Date: 20040803
  Receipt Date: 20040721
  Transmission Date: 20050211
  Serious: Yes (Hospitalization)
  Sender: FDA-Public Use
  Company Number: US-JNJFOC-20040400993

PATIENT
  Age: 60 Year
  Sex: Female
  Weight: 45.3597 kg

DRUGS (9)
  1. DURAGESIC [Suspect]
     Indication: PAIN
     Dosage: 50 + 75 + 100 UG/HR, TRANSDERMAL SEE IMAGE
     Route: 062
     Dates: start: 20030101, end: 20031001
  2. DURAGESIC [Suspect]
     Indication: PAIN
     Dosage: 50 + 75 + 100 UG/HR, TRANSDERMAL SEE IMAGE
     Route: 062
     Dates: start: 20031001, end: 20040406
  3. DURAGESIC [Suspect]
     Indication: PAIN
     Dosage: 50 + 75 + 100 UG/HR, TRANSDERMAL SEE IMAGE
     Route: 062
     Dates: start: 20040406, end: 20040721
  4. DURAGESIC [Suspect]
     Indication: PAIN
     Dosage: 50 + 75 + 100 UG/HR, TRANSDERMAL SEE IMAGE
     Route: 062
     Dates: start: 20020101
  5. DURAGESIC [Suspect]
  6. OXYGEN (OXYGEN) INHALATION [Concomitant]
  7. XANAX [Concomitant]
  8. PERCOCET (OXYCOCET) TABLETS [Concomitant]
  9. ACCUPRIL (QUINAPRIL HYDROCHLORIDE) TABLETS [Concomitant]

REACTIONS (17)
  - CHEST PAIN [None]
  - COLD SWEAT [None]
  - CONDITION AGGRAVATED [None]
  - DIARRHOEA [None]
  - DRUG WITHDRAWAL SYNDROME [None]
  - DYSPNOEA [None]
  - FATIGUE [None]
  - HYPERHIDROSIS [None]
  - HYPERSOMNIA [None]
  - INCREASED UPPER AIRWAY SECRETION [None]
  - MUSCLE CRAMP [None]
  - PANIC ATTACK [None]
  - PHARMACEUTICAL PRODUCT COMPLAINT [None]
  - PULMONARY FUNCTION TEST DECREASED [None]
  - RESPIRATORY TRACT CONGESTION [None]
  - SELF-MEDICATION [None]
  - SPUTUM DISCOLOURED [None]
